FAERS Safety Report 4465942-X (Version None)
Quarter: 2004Q3

REPORT INFORMATION
  Report Type: 
  Country: None (occurrence: None)
  Receive Date: 20040930
  Receipt Date: 20040930
  Transmission Date: 20050211
  Serious: Yes (Hospitalization)
  Sender: FDA-Public Use
  Company Number: None

PATIENT
  Sex: Male

DRUGS (14)
  1. GATIFLOXACIN [Suspect]
     Indication: URINARY TRACT INFECTION
     Dosage: 400 MG DAILY ORAL
     Route: 048
     Dates: start: 20040610, end: 20040617
  2. SERTRALINE HCL [Concomitant]
  3. HALOPERIDOL [Concomitant]
  4. NIFEREX [Concomitant]
  5. MULTI-VITAMIN [Concomitant]
  6. GLYBURIDE [Concomitant]
  7. APAP TAB [Concomitant]
  8. ASPIRIN [Concomitant]
  9. DONEZPEZIL [Concomitant]
  10. BENZTROPINE MESYLATE [Concomitant]
  11. LORAZEPAM [Concomitant]
  12. GABAPENTIN [Concomitant]
  13. AMANTADINE HCL [Concomitant]
  14. VITAMIN E [Concomitant]

REACTIONS (1)
  - LIVER FUNCTION TEST ABNORMAL [None]
